FAERS Safety Report 4285451-0 (Version None)
Quarter: 2004Q1

REPORT INFORMATION
  Report Type: 
  Country: None (occurrence: None)
  Receive Date: 20040202
  Receipt Date: 20040122
  Transmission Date: 20041129
  Serious: Yes (Life-Threatening, Hospitalization)
  Sender: FDA-Public Use
  Company Number: FRP03000921

PATIENT
  Age: 57 Year
  Sex: Male
  Weight: 57 kg

DRUGS (6)
  1. DIDRONEL [Suspect]
     Indication: OSTEOPOROSIS
     Dosage: 400 MG, CYCLIC 1/D, ORAL
     Route: 048
     Dates: start: 20000101
  2. CACIT D3(CALCIUM CARBONATE, COLECALCIFEROL, CALCIUM CARBONATE) EFFERVE [Suspect]
     Indication: OSTEOPOROSIS
     Dosage: ORAL
     Route: 048
     Dates: start: 20000101
  3. SYMBICORT (FORMOTEROL, BUDESONIDE) [Suspect]
     Dosage: DAILY, BUCCAL
     Route: 002
  4. VENTOLIN [Suspect]
     Dosage: BUCCAL
     Route: 002
  5. PREDNISOLONE [Suspect]
     Dosage: 20MG, DAILY, ORAL
     Route: 048
  6. OGAST(LANSOPRAZOLE) [Suspect]
     Dosage: 30 MG, DAILY, ORAL
     Route: 048

REACTIONS (9)
  - ASTHMA [None]
  - BRADYCARDIA [None]
  - BUNDLE BRANCH BLOCK RIGHT [None]
  - C-REACTIVE PROTEIN INCREASED [None]
  - CHRONIC OBSTRUCTIVE AIRWAYS DISEASE EXACERBATED [None]
  - CYANOSIS [None]
  - LEUKOCYTOSIS [None]
  - RESPIRATORY FAILURE [None]
  - TREATMENT NONCOMPLIANCE [None]
